FAERS Safety Report 13994183 (Version 1)
Quarter: 2017Q3

REPORT INFORMATION
  Report Type: Spontaneous
  Country: US (occurrence: US)
  Receive Date: 20170920
  Receipt Date: 20170920
  Transmission Date: 20171128
  Serious: Yes (Other)
  Sender: FDA-Public Use
  Company Number: None

PATIENT
  Age: 64 Year
  Sex: Female
  Weight: 68.76 kg

DRUGS (1)
  1. DESVENLAFAXINE ER [Suspect]
     Active Substance: DESVENLAFAXINE
     Indication: DEPRESSION
     Route: 048
     Dates: start: 20161208, end: 20170308

REACTIONS (2)
  - Serotonin syndrome [None]
  - Drug withdrawal syndrome [None]

NARRATIVE: CASE EVENT DATE: 20161208
